FAERS Safety Report 12689012 (Version 1)
Quarter: 2016Q3

REPORT INFORMATION
  Report Type: Spontaneous
  Country: US (occurrence: None)
  Receive Date: 20160825
  Receipt Date: 20160825
  Transmission Date: 20161109
  Serious: Yes (Disabling)
  Sender: FDA-Public Use
  Company Number: None

PATIENT
  Age: 49 Year
  Sex: Female
  Weight: 60.33 kg

DRUGS (2)
  1. MEFLOQUINE [Suspect]
     Active Substance: MEFLOQUINE
     Indication: PRODUCT USED FOR UNKNOWN INDICATION
     Dosage: 1 TABLET WEEKLY
     Route: 048
     Dates: start: 20030901, end: 20040301
  2. VYVANSE [Concomitant]
     Active Substance: LISDEXAMFETAMINE DIMESYLATE

REACTIONS (8)
  - Fatigue [None]
  - Pain [None]
  - Attention deficit/hyperactivity disorder [None]
  - Sleep disorder [None]
  - Neuropathy peripheral [None]
  - Restless legs syndrome [None]
  - Irritable bowel syndrome [None]
  - Constipation [None]
